FAERS Safety Report 10167664 (Version 1)
Quarter: 2014Q2

REPORT INFORMATION
  Report Type: Spontaneous
  Country: AU (occurrence: AU)
  Receive Date: 20140512
  Receipt Date: 20140512
  Transmission Date: 20141212
  Serious: Yes (Death)
  Sender: FDA-Public Use
  Company Number: AU-CELGENEUS-008-21660-14045476

PATIENT
  Sex: Female
  Weight: 58 kg

DRUGS (2)
  1. ABRAXANE [Suspect]
     Indication: PANCREATIC CARCINOMA
     Dosage: 17.8571 MILLIGRAM/SQ. METER
     Route: 041
  2. GEMCITABINE [Concomitant]
     Indication: PANCREATIC CARCINOMA
     Route: 065

REACTIONS (1)
  - Pancreatic carcinoma [Fatal]
